FAERS Safety Report 4780837-X (Version None)
Quarter: 2005Q3

REPORT INFORMATION
  Report Type: 
  Country: None (occurrence: None)
  Receive Date: 20050914
  Receipt Date: 20040803
  Transmission Date: 20060218
  Serious: Yes (Death)
  Sender: FDA-Public Use
  Company Number: 163-20785-04080122

PATIENT
  Age: 49 Year
  Sex: Male

DRUGS (1)
  1. THALOMID [Suspect]
     Indication: BRAIN NEOPLASM MALIGNANT
     Dosage: 600 MG, DAILY, ORAL
     Route: 048
     Dates: start: 20031015, end: 20040415

REACTIONS (1)
  - DEATH [None]
